FAERS Safety Report 6191292-X (Version None)
Quarter: 2009Q2

REPORT INFORMATION
  Report Type: 
  Country: None (occurrence: None)
  Receive Date: 20090515
  Receipt Date: 20090512
  Transmission Date: 20091009
  Serious: Yes (Death)
  Sender: FDA-Public Use
  Company Number: RU-ROCHE-632619

PATIENT
  Sex: Female

DRUGS (3)
  1. XELODA [Suspect]
     Indication: BREAST CANCER
     Route: 048
  2. HERCEPTIN [Suspect]
     Indication: BREAST CANCER
     Route: 042
     Dates: start: 20070101
  3. PACLITAXEL [Concomitant]
     Indication: BREAST CANCER
     Dates: start: 20090101, end: 20090301

REACTIONS (1)
  - PULMONARY OEDEMA [None]
